FAERS Safety Report 10728924 (Version 1)
Quarter: 2015Q1

REPORT INFORMATION
  Report Type: Spontaneous
  Country: BR (occurrence: BR)
  Receive Date: 20150122
  Receipt Date: 20150122
  Transmission Date: 20150721
  Serious: Yes (Other)
  Sender: FDA-Public Use
  Company Number: BR-JNJFOC-20150108669

PATIENT
  Age: 70 Year
  Sex: Male
  Weight: 136 kg

DRUGS (10)
  1. ALPRAZOLAM. [Concomitant]
     Active Substance: ALPRAZOLAM
     Route: 048
     Dates: start: 2013
  2. BETAHISTINE HYDROCHLORIDE [Concomitant]
     Active Substance: BETAHISTINE HYDROCHLORIDE
     Route: 048
  3. BENICAR [Concomitant]
     Active Substance: OLMESARTAN MEDOXOMIL
     Indication: HYPERTENSION
     Route: 048
  4. ATORVASTATIN [Concomitant]
     Active Substance: ATORVASTATIN
     Route: 048
  5. SUSTRATE [Concomitant]
     Active Substance: PROPATYL NITRATE
     Indication: CARDIAC FAILURE
     Route: 048
     Dates: start: 2011
  6. PANTOPRAZOLE [Concomitant]
     Active Substance: PANTOPRAZOLE SODIUM
     Route: 048
  7. AMARIL VACCINE [Concomitant]
     Indication: INFARCTION
     Route: 048
  8. AVALOX [Suspect]
     Active Substance: MOXIFLOXACIN HYDROCHLORIDE
     Indication: INFLUENZA
     Route: 048
     Dates: start: 20150105
  9. XARELTO [Suspect]
     Active Substance: RIVAROXABAN
     Indication: ATRIAL HYPERTROPHY
     Route: 048
     Dates: start: 20141118
  10. DEPURAN [Concomitant]
     Indication: VITAMIN D
     Route: 048
     Dates: start: 201409

REACTIONS (5)
  - Off label use [Unknown]
  - Heart rate irregular [Recovered/Resolved]
  - Malaise [Recovered/Resolved]
  - Dizziness [Recovered/Resolved]
  - Blood pressure increased [Unknown]

NARRATIVE: CASE EVENT DATE: 20150109
